FAERS Safety Report 4524821-X (Version None)
Quarter: 2004Q4

REPORT INFORMATION
  Report Type: 
  Country: None (occurrence: None)
  Receive Date: 20041209
  Receipt Date: 20041209
  Transmission Date: 20050328
  Serious: Yes (Hospitalization, Disabling)
  Sender: FDA-Public Use
  Company Number: None

PATIENT
  Age: 83 Year
  Sex: Female
  Weight: 45.3597 kg

DRUGS (2)
  1. ZOMETA [Suspect]
     Dosage: INTRAVENOUS
     Route: 042
  2. AREDIA [Suspect]
     Dosage: INTRAVENOUS
     Route: 042

REACTIONS (2)
  - MALNUTRITION [None]
  - OSTEOMYELITIS [None]
